FAERS Safety Report 9395563 (Version 1)
Quarter: 2013Q3

REPORT INFORMATION
  Report Type: Report from Study
  Country: PL (occurrence: PL)
  Receive Date: 20130711
  Receipt Date: 20130711
  Transmission Date: 20140515
  Serious: Yes (Other)
  Sender: FDA-Public Use
  Company Number: PL-ASTELLAS-2013US007190

PATIENT
  Age: 58 Year
  Sex: Female

DRUGS (2)
  1. ERLOTINIB TABLET [Suspect]
     Indication: NON-SMALL CELL LUNG CANCER STAGE IV
     Dosage: 100 MG, UID/QD
     Route: 048
     Dates: start: 20101218, end: 20110912
  2. GASEC [Concomitant]
     Indication: PRODUCT USED FOR UNKNOWN INDICATION
     Dosage: UNK
     Route: 048
     Dates: start: 20101014

REACTIONS (14)
  - Incorrect dose administered [Unknown]
  - Psychomotor retardation [Unknown]
  - Rash [Recovered/Resolved]
  - Lung cancer metastatic [Unknown]
  - Paronychia [Recovered/Resolved]
  - Depression [Not Recovered/Not Resolved]
  - Abdominal pain [Recovered/Resolved]
  - Depressed mood [Unknown]
  - Dry skin [Recovered/Resolved]
  - Weight decreased [Unknown]
  - Fatigue [Unknown]
  - Decreased appetite [Not Recovered/Not Resolved]
  - Flatulence [Recovered/Resolved]
  - Weight decreased [Unknown]
